FAERS Safety Report 9157555 (Version 1)
Quarter: 2013Q1

REPORT INFORMATION
  Report Type: Spontaneous
  Country: US (occurrence: None)
  Receive Date: 20130311
  Receipt Date: 20130311
  Transmission Date: 20140127
  Serious: Yes (Other)
  Sender: FDA-Public Use
  Company Number: None

PATIENT
  Age: 47 Year
  Sex: Female
  Weight: 76.84 kg

DRUGS (1)
  1. VICTOZA 18 MG/ 3ML [Suspect]
     Indication: TYPE 2 DIABETES MELLITUS
     Route: 058
     Dates: start: 20111201, end: 20130307

REACTIONS (3)
  - Benign pancreatic neoplasm [None]
  - Adenocarcinoma pancreas [None]
  - Intraductal papillary mucinous neoplasm [None]
